FAERS Safety Report 5497303-9 (Version None)
Quarter: 2007Q4

REPORT INFORMATION
  Report Type: 
  Country: None (occurrence: None)
  Receive Date: 20071025
  Receipt Date: 20060926
  Transmission Date: 20080405
  Serious: No
  Sender: FDA-Public Use
  Company Number: A0621568A

PATIENT
  Age: 23 Year
  Sex: Female

DRUGS (7)
  1. ADVAIR DISKUS 100/50 [Suspect]
     Indication: ASTHMA
     Route: 055
  2. KETEK [Suspect]
     Indication: SINUSITIS
     Dosage: 800MG PER DAY
     Route: 048
     Dates: start: 20060913, end: 20060914
  3. SINGULAIR [Concomitant]
  4. NASACORT [Concomitant]
  5. ORTHO TRI-CYCLEN LO [Concomitant]
  6. SLOW FE [Concomitant]
  7. ALBUTEROL [Concomitant]

REACTIONS (5)
  - ANXIETY [None]
  - DRUG INTERACTION [None]
  - TACHYCARDIA [None]
  - TENSION [None]
  - TREMOR [None]
